FAERS Safety Report 5644626-6 (Version None)
Quarter: 2008Q1

REPORT INFORMATION
  Report Type: 
  Country: None (occurrence: None)
  Receive Date: 20080229
  Receipt Date: 20070417
  Transmission Date: 20080703
  Serious: No
  Sender: FDA-Public Use
  Company Number: A0647637A

PATIENT
  Age: 73 Year
  Sex: Female

DRUGS (3)
  1. VALTREX [Suspect]
     Dosage: 2G PER DAY
     Route: 048
     Dates: start: 20061001
  2. AVALIDE [Concomitant]
  3. VERAPAMIL [Concomitant]

REACTIONS (3)
  - ALOPECIA [None]
  - PRURITUS [None]
  - RASH [None]
